FAERS Safety Report 20719331 (Version 4)
Quarter: 2022Q2

REPORT INFORMATION
  Report Type: Spontaneous
  Country: JP (occurrence: JP)
  Receive Date: 20220418
  Receipt Date: 20220616
  Transmission Date: 20220720
  Serious: No
  Sender: FDA-Public Use
  Company Number: JP-GLAXOSMITHKLINE-JP2022JPN064825

PATIENT

DRUGS (13)
  1. SOTROVIMAB [Suspect]
     Active Substance: SOTROVIMAB
     Indication: COVID-19
     Dosage: 500 MG
     Dates: start: 20220409, end: 20220409
  2. METOCLOPRAMIDE [Suspect]
     Active Substance: METOCLOPRAMIDE
     Indication: Vomiting
     Dosage: UNK, PRN
     Dates: start: 20211110
  3. AMBROXOL [Suspect]
     Active Substance: AMBROXOL
     Indication: Nasopharyngitis
     Dosage: 45 MG
     Dates: start: 20220119
  4. MIYA-BM [Suspect]
     Active Substance: CLOSTRIDIUM BUTYRICUM SPORES STRAIN M-55
     Dosage: 6 DF
     Dates: start: 20211027
  5. TIQUIZIUM [Suspect]
     Active Substance: TIQUIZIUM
     Dosage: UNK, PRN
     Dates: start: 20211027
  6. HERBALS [Suspect]
     Active Substance: HERBALS
     Indication: Vomiting
     Dosage: 3 G
     Dates: start: 20211110
  7. EPRAZINONE [Suspect]
     Active Substance: EPRAZINONE
     Indication: Nasopharyngitis
     Dosage: 60 MG
     Dates: start: 20220119
  8. DEQUALINIUM CHLORIDE [Suspect]
     Active Substance: DEQUALINIUM CHLORIDE
     Indication: Nasopharyngitis
     Dosage: 1 MG
     Dates: start: 20220119
  9. FERROUS SULFATE [Suspect]
     Active Substance: FERROUS SULFATE
     Indication: Anaemia
     Dosage: 105 MG
     Dates: start: 20220409
  10. RITODRINE [Suspect]
     Active Substance: RITODRINE
     Dosage: UNK, AS NEEDED
     Dates: start: 20220409
  11. CLOPERASTINE [Suspect]
     Active Substance: CLOPERASTINE
     Indication: COVID-19
     Dosage: 30 MG
     Dates: start: 20220409
  12. CARBOCYSTEINE [Suspect]
     Active Substance: CARBOCYSTEINE
     Indication: COVID-19
     Dosage: 1500 MG
     Dates: start: 20220409
  13. CALONAL [Suspect]
     Active Substance: ACETAMINOPHEN
     Indication: COVID-19
     Dosage: 400 MG
     Dates: start: 20220410

REACTIONS (2)
  - Exposure during pregnancy [Unknown]
  - Live birth [Unknown]
